FAERS Safety Report 6700533-9 (Version None)
Quarter: 2010Q2

REPORT INFORMATION
  Report Type: 
  Country: None (occurrence: None)
  Receive Date: 20100426
  Receipt Date: 20100409
  Transmission Date: 20101027
  Serious: Yes (Hospitalization)
  Sender: FDA-Public Use
  Company Number: DSA_42705_2010

PATIENT
  Sex: Male

DRUGS (8)
  1. DILTIAZEM HYDROCHLORIDE [Suspect]
     Indication: HYPERTENSION
     Dosage: 100 MG, DF ORAL
     Route: 048
     Dates: end: 20100211
  2. DILTIAZEM HYDROCHLORIDE [Suspect]
     Indication: PRINZMETAL ANGINA
     Dosage: 100 MG, DF ORAL
     Route: 048
     Dates: end: 20100211
  3. SUNRYTHM (SUNRYTHM- PILSICAINIDE) (NOT SPECIFIED) [Suspect]
     Indication: VENTRICULAR EXTRASYSTOLES
     Dosage: 150 MG QD ORAL
     Route: 048
     Dates: end: 20100211
  4. MELBIN [Concomitant]
  5. ITOROL [Concomitant]
  6. PANALDINE [Concomitant]
  7. CANDESARTAN CILEXETIL [Concomitant]
  8. HARNAL [Concomitant]

REACTIONS (3)
  - BUNDLE BRANCH BLOCK [None]
  - CARDIOACTIVE DRUG LEVEL INCREASED [None]
  - SICK SINUS SYNDROME [None]
